FAERS Safety Report 17437566 (Version 1)
Quarter: 2020Q1

REPORT INFORMATION
  Report Type: Spontaneous
  Country: FR (occurrence: FR)
  Receive Date: 20200219
  Receipt Date: 20200219
  Transmission Date: 20200409
  Serious: Yes (Hospitalization)
  Sender: FDA-Public Use
  Company Number: FR-ANIPHARMA-2020-FR-000050

PATIENT
  Age: 34 Year
  Sex: Male

DRUGS (8)
  1. TRENBOLONE) [Suspect]
     Active Substance: TRENBOLONE
     Dosage: UNK
     Route: 048
     Dates: start: 20191209, end: 20191231
  2. OXYMETHOLONE [Suspect]
     Active Substance: OXYMETHOLONE
     Dosage: UNKNOWN
     Route: 048
     Dates: start: 20191209, end: 20191231
  3. ARIMIDEX [Suspect]
     Active Substance: ANASTROZOLE
     Indication: ANABOLIC DIET
     Dosage: UNK
     Route: 048
     Dates: start: 20191209, end: 20191231
  4. OXANDROLONE. [Suspect]
     Active Substance: OXANDROLONE
     Dosage: UNKNOWN
     Route: 048
     Dates: start: 20191209, end: 20191231
  5. CLENBUTEROL [Suspect]
     Active Substance: CLENBUTEROL
     Dosage: UNKNOWN
     Route: 048
     Dates: start: 20191209, end: 20191231
  6. PRIMOBOLAN [Suspect]
     Active Substance: METHENOLONE
     Dosage: UNKNOWN
     Route: 048
     Dates: start: 20191209, end: 20191231
  7. TESTOSTERONE. [Suspect]
     Active Substance: TESTOSTERONE
     Dosage: UNKNOWN
     Route: 048
     Dates: start: 20191209
  8. DOSTINEX [Suspect]
     Active Substance: CABERGOLINE
     Dosage: UNKNOWN
     Route: 048
     Dates: start: 20191209, end: 20191231

REACTIONS (4)
  - Off label use [Recovered/Resolved]
  - Hepatocellular injury [Not Recovered/Not Resolved]
  - Cholestasis [Not Recovered/Not Resolved]
  - Renal failure [Not Recovered/Not Resolved]

NARRATIVE: CASE EVENT DATE: 201912
